FAERS Safety Report 6643511-0 (Version None)
Quarter: 2010Q1

REPORT INFORMATION
  Report Type: 
  Country: None (occurrence: None)
  Receive Date: 20100319
  Receipt Date: 20100311
  Transmission Date: 20100710
  Serious: Yes (Hospitalization, Other)
  Sender: FDA-Public Use
  Company Number: US-AMGEN-QUU399109

PATIENT
  Sex: Female

DRUGS (1)
  1. ENBREL [Suspect]
     Indication: RHEUMATOID ARTHRITIS
     Route: 058
     Dates: start: 20011001

REACTIONS (5)
  - INFLAMMATION [None]
  - PYREXIA [None]
  - RETROPERITONEAL FIBROSIS [None]
  - RHEUMATOID ARTHRITIS [None]
  - URETERIC OBSTRUCTION [None]
